FAERS Safety Report 4961842-7 (Version None)
Quarter: 2006Q1

REPORT INFORMATION
  Report Type: 
  Country: None (occurrence: None)
  Receive Date: 20060329
  Receipt Date: 20060317
  Transmission Date: 20060701
  Serious: Yes (Hospitalization)
  Sender: FDA-Public Use
  Company Number: CLOF-10212

PATIENT
  Age: 69 Year
  Sex: Female

DRUGS (1)
  1. CLOLAR [Suspect]
     Indication: NON-HODGKIN'S LYMPHOMA
     Dates: start: 20060220

REACTIONS (9)
  - AUTOIMMUNE THROMBOCYTOPENIA [None]
  - BONE MARROW FAILURE [None]
  - DISSEMINATED INTRAVASCULAR COAGULATION [None]
  - EPISTAXIS [None]
  - HAEMOGLOBIN DECREASED [None]
  - PALMAR-PLANTAR ERYTHRODYSAESTHESIA SYNDROME [None]
  - RASH [None]
  - THERAPY NON-RESPONDER [None]
  - THROMBOTIC THROMBOCYTOPENIC PURPURA [None]
